FAERS Safety Report 18947690 (Version 2)
Quarter: 2021Q1

REPORT INFORMATION
  Report Type: Spontaneous
  Country: US (occurrence: US)
  Receive Date: 20210226
  Receipt Date: 20210319
  Transmission Date: 20210420
  Serious: Yes (Other)
  Sender: FDA-Public Use
  Company Number: US-ASTRAZENECA-2021A081137

PATIENT
  Sex: Male
  Weight: 127 kg

DRUGS (4)
  1. HCTZ [Concomitant]
     Active Substance: HYDROCHLOROTHIAZIDE
     Indication: OEDEMA
     Route: 065
  2. ISOSORB [Concomitant]
     Route: 065
  3. BRILINTA [Suspect]
     Active Substance: TICAGRELOR
     Indication: STENT PLACEMENT
     Route: 048
     Dates: start: 20190621
  4. ASPIRIN. [Concomitant]
     Active Substance: ASPIRIN
     Route: 065

REACTIONS (6)
  - Sleep apnoea syndrome [Unknown]
  - Dysuria [Unknown]
  - Sinusitis [Unknown]
  - Calculus bladder [Unknown]
  - Nephrolithiasis [Unknown]
  - Cheyne-Stokes respiration [Unknown]
